FAERS Safety Report 25996063 (Version 1)
Quarter: 2025Q4

REPORT INFORMATION
  Report Type: Spontaneous
  Country: CN (occurrence: CN)
  Receive Date: 20251104
  Receipt Date: 20251104
  Transmission Date: 20260117
  Serious: Yes (Other)
  Sender: BAYER HEALTHCARE PHARMACEUTICALS INC.
  Company Number: CN-BAYER-2025A145708

PATIENT
  Age: 72 Year
  Sex: Male
  Weight: 95 kg

DRUGS (2)
  1. ULTRAVIST [Suspect]
     Active Substance: IOPROMIDE
     Indication: Computerised tomogram
     Dosage: 78 ML, ONCE, 2.5ML/S
     Route: 042
     Dates: start: 20251103, end: 20251103
  2. ULTRAVIST [Suspect]
     Active Substance: IOPROMIDE
     Indication: Neoplasm malignant

REACTIONS (4)
  - Cough [Recovering/Resolving]
  - Indifference [Recovering/Resolving]
  - Blood pressure fluctuation [None]
  - Heart rate increased [Recovered/Resolved]

NARRATIVE: CASE EVENT DATE: 20251103
